FAERS Safety Report 22137083 (Version 1)
Quarter: 2023Q1

REPORT INFORMATION
  Report Type: Spontaneous
  Country: US (occurrence: US)
  Receive Date: 20230324
  Receipt Date: 20230324
  Transmission Date: 20230417
  Serious: No
  Sender: FDA-Public Use
  Company Number: US-009507513-2302USA008307

PATIENT
  Age: 6 Month
  Sex: Male

DRUGS (5)
  1. PREVYMIS [Suspect]
     Active Substance: LETERMOVIR
     Indication: Antiviral prophylaxis
     Dosage: 240 MILLIGRAM, BID
     Route: 042
  2. LEFLUNOMIDE [Concomitant]
     Active Substance: LEFLUNOMIDE
     Indication: Antiviral prophylaxis
     Dosage: 5 MILLIGRAM, Q24H
     Route: 048
  3. ARTESUNATE [Concomitant]
     Active Substance: ARTESUNATE
     Indication: Antiviral prophylaxis
     Dosage: 3 MILLIGRAM/KILOGRAM, Q24H
     Route: 042
  4. MARIBAVIR [Concomitant]
     Active Substance: MARIBAVIR
     Dosage: UNK
  5. METHYLPREDNISOLONE [Concomitant]
     Active Substance: METHYLPREDNISOLONE
     Dosage: UNK

REACTIONS (1)
  - Off label use [Unknown]
